FAERS Safety Report 24558925 (Version 1)
Quarter: 2024Q4

REPORT INFORMATION
  Report Type: Spontaneous
  Country: AU (occurrence: AU)
  Receive Date: 20241029
  Receipt Date: 20241029
  Transmission Date: 20250114
  Serious: Yes (Hospitalization)
  Sender: MERCK
  Company Number: AU-009507513-2410AUS011722

PATIENT
  Age: 78 Year
  Sex: Male

DRUGS (2)
  1. KEYTRUDA [Suspect]
     Active Substance: PEMBROLIZUMAB
     Indication: Non-small cell lung cancer
     Dosage: 200 MILLIGRAM, Q3W
     Route: 042
     Dates: start: 20240529
  2. ONVAPEGLEUKIN ALFA [Suspect]
     Active Substance: ONVAPEGLEUKIN ALFA
     Indication: Non-small cell lung cancer
     Dosage: 12 MILLIGRAM/KILOGRAM, INTERVAL: 1 MONTH
     Route: 042
     Dates: start: 20240529

REACTIONS (2)
  - Asthenia [Unknown]
  - Pain in extremity [Unknown]

NARRATIVE: CASE EVENT DATE: 20240604
